FAERS Safety Report 12728270 (Version 1)
Quarter: 2016Q3

REPORT INFORMATION
  Report Type: Spontaneous
  Country: US (occurrence: US)
  Receive Date: 20160908
  Receipt Date: 20160908
  Transmission Date: 20161109
  Serious: No
  Sender: FDA-Public Use
  Company Number: None

PATIENT
  Age: 40 Year
  Sex: Female
  Weight: 65.25 kg

DRUGS (4)
  1. XANAX [Concomitant]
     Active Substance: ALPRAZOLAM
  2. LUNESTA [Concomitant]
     Active Substance: ESZOPICLONE
  3. PICATO [Suspect]
     Active Substance: INGENOL MEBUTATE
     Indication: NEOPLASM MALIGNANT
     Dosage: OTHER STRENGTH:;OTHER DOSE:0.47;OTHER FREQUENCY:;OTHER ROUTE:
     Route: 061
     Dates: start: 20160821, end: 20160822
  4. MULTI VITAMIN [Concomitant]
     Active Substance: VITAMINS

REACTIONS (5)
  - Pain [None]
  - Abscess [None]
  - Blister [None]
  - Erythema [None]
  - Nasal oedema [None]

NARRATIVE: CASE EVENT DATE: 20160822
